FAERS Safety Report 5748834-5 (Version None)
Quarter: 2008Q2

REPORT INFORMATION
  Report Type: 
  Country: None (occurrence: None)
  Receive Date: 20080522
  Receipt Date: 20080505
  Transmission Date: 20081010
  Serious: Yes (Other)
  Sender: FDA-Public Use
  Company Number: 2008AL003779

PATIENT
  Age: 75 Year
  Sex: Male

DRUGS (15)
  1. DIGOXIN [Suspect]
     Dosage: 0.25MG DAILY PO
     Route: 048
  2. PREVACID [Concomitant]
  3. ACIDOPHILUS [Concomitant]
  4. ASPIRIN [Concomitant]
  5. GINGKO BILOBA [Concomitant]
  6. MULTI-VITAMIN [Concomitant]
  7. NAMENDA [Concomitant]
  8. NITROGLYCERIN [Concomitant]
  9. FISH OIL CAPSULES [Concomitant]
  10. WARFARIN SODIUM [Concomitant]
  11. ACTOS [Concomitant]
  12. LANOXIN [Concomitant]
  13. DETROL LA [Concomitant]
  14. TRAZODONE HCL [Concomitant]
  15. GLYPIDIZE [Concomitant]

REACTIONS (1)
  - SYNCOPE [None]
